FAERS Safety Report 18610635 (Version 1)
Quarter: 2020Q4

REPORT INFORMATION
  Report Type: Spontaneous
  Country: FR (occurrence: FR)
  Receive Date: 20201214
  Receipt Date: 20201214
  Transmission Date: 20210114
  Serious: Yes (Other)
  Sender: FDA-Public Use
  Company Number: FR-MYLANLABS-2020M1100246

PATIENT
  Age: 30 Year
  Sex: Male

DRUGS (2)
  1. VALIUM [Concomitant]
     Active Substance: DIAZEPAM
     Dosage: UNK
     Route: 048
  2. VALPROATE DE SODIUM MYLAN L.P. 500 MG [Suspect]
     Active Substance: VALPROATE SODIUM
     Indication: SELF-MEDICATION
     Dosage: 1500 MILLIGRAM, QD
     Route: 048
     Dates: start: 20200410, end: 20200413

REACTIONS (3)
  - Hallucination, auditory [Recovered/Resolved]
  - Persecutory delusion [Recovered/Resolved]
  - Hallucination, visual [Recovered/Resolved]

NARRATIVE: CASE EVENT DATE: 20200413
